FAERS Safety Report 13912514 (Version 1)
Quarter: 2017Q3

REPORT INFORMATION
  Report Type: Spontaneous
  Country: US (occurrence: US)
  Receive Date: 20170828
  Receipt Date: 20170828
  Transmission Date: 20171127
  Serious: No
  Sender: FDA-Public Use
  Company Number: US-B.I. PHARMACEUTICALS,INC./RIDGEFIELD-2017-BI-046199

PATIENT
  Sex: Female

DRUGS (11)
  1. DESVENLAFAXINE. [Concomitant]
     Active Substance: DESVENLAFAXINE
     Indication: DEPRESSION
     Dosage: 1 TABLET 1 TIME DAILY;  FORM STRENGTH: 100 MG; FORMULATION: TABLET
     Route: 048
     Dates: start: 2012
  2. ATORVASTATIN [Concomitant]
     Active Substance: ATORVASTATIN
     Indication: BLOOD CHOLESTEROL INCREASED
     Dosage: 1 TABLET 1 TIME DAILY;  FORM STRENGTH: 40 MG; FORMULATION: TABLET
     Route: 048
     Dates: start: 2009
  3. METFORMIN [Concomitant]
     Active Substance: METFORMIN HYDROCHLORIDE
     Indication: DIABETES MELLITUS
     Dosage: 1 TABLET BID;  FORM STRENGTH: 850 MG; FORMULATION: TABLET
     Route: 048
     Dates: start: 2017
  4. HUMALOG [Concomitant]
     Active Substance: INSULIN LISPRO
     Indication: DIABETES MELLITUS
     Dosage: WITH MORNING MEAL;  FORM STRENGTH: 7 UNITS; FORMULATION: SOLUTION FOR INFUSION
     Route: 048
     Dates: start: 2007
  5. SPIRIVA [Suspect]
     Active Substance: TIOTROPIUM BROMIDE MONOHYDRATE
     Indication: CHRONIC OBSTRUCTIVE PULMONARY DISEASE
     Dosage: 1 CAPSULE 1 TIME DAILY;  FORM STRENGTH: 18 MCG; FORMULATION: CAPSULE? ADMINISTRATION CORRECT? YES ?A
     Route: 055
     Dates: start: 2013
  6. BUSPIRONE [Concomitant]
     Active Substance: BUSPIRONE HYDROCHLORIDE
     Indication: ANXIETY
     Dosage: 1 TABLET 1 TIME DAILY;  FORM STRENGTH: 15 MG; FORMULATION: TABLET
     Route: 048
     Dates: start: 2007
  7. OMEPRAZOLE. [Concomitant]
     Active Substance: OMEPRAZOLE
     Indication: DYSPEPSIA
     Dosage: 1 TABLET 1 TIME DAILY;  FORM STRENGTH: 20 MG; FORMULATION: TABLET
     Route: 048
     Dates: start: 2007
  8. LANTUS [Concomitant]
     Active Substance: INSULIN GLARGINE
     Indication: DIABETES MELLITUS
     Dosage: 1 TIME DAILY;  FORM STRENGTH: 29 UNITS; FORMULATION: SUBCUTANEOUS
     Route: 058
     Dates: start: 2007
  9. XIIDRA OPHTHALMIC SOLUTION [Concomitant]
     Indication: DRY EYE
     Dosage: 1 DROP EACH EYE BID;
     Route: 065
     Dates: start: 201707
  10. VALSARTAN / HYDROCHLOROTHIAZIDE [Concomitant]
     Active Substance: HYDROCHLOROTHIAZIDE\VALSARTAN
     Indication: HYPERTENSION
     Dosage: 1 TABLET 1 TIME DAILY;  FORM STRENGTH: 320 MG / 25 MG; FORMULATION: TABLET
     Route: 048
  11. HUMALOG [Concomitant]
     Active Substance: INSULIN LISPRO
     Dosage: WITH AFTERNOON MEAL;  FORM STRENGTH: 5 UNITS; FORMULATION: SUBCUTANEOUS
     Route: 058
     Dates: start: 2007

REACTIONS (2)
  - Memory impairment [Not Recovered/Not Resolved]
  - Cataract [Recovered/Resolved]

NARRATIVE: CASE EVENT DATE: 2013
